FAERS Safety Report 6205602-8 (Version None)
Quarter: 2009Q2

REPORT INFORMATION
  Report Type: 
  Country: None (occurrence: None)
  Receive Date: 20090527
  Receipt Date: 20090407
  Transmission Date: 20091009
  Serious: No
  Sender: FDA-Public Use
  Company Number: US-ABBOTT-09P-163-0567060-00

PATIENT
  Sex: Female
  Weight: 72.64 kg

DRUGS (1)
  1. SIMCOR [Suspect]
     Indication: BLOOD CHOLESTEROL INCREASED
     Dosage: SAMPLES 500/20 DAILY
     Route: 048
     Dates: start: 20090407, end: 20090407

REACTIONS (3)
  - ERYTHEMA [None]
  - PRURITUS [None]
  - SKIN BURNING SENSATION [None]
